FAERS Safety Report 5843627-2 (Version None)
Quarter: 2008Q3

REPORT INFORMATION
  Report Type: 
  Country: None (occurrence: None)
  Receive Date: 20080813
  Receipt Date: 20080714
  Transmission Date: 20090109
  Serious: No
  Sender: FDA-Public Use
  Company Number: A0737521A

PATIENT
  Sex: Male

DRUGS (3)
  1. COREG CR [Suspect]
     Indication: ARRHYTHMIA
     Dosage: 12.5MG TWICE PER DAY
     Route: 048
  2. AVANDAMET [Concomitant]
  3. TOPROL-XL [Concomitant]
     Indication: ARRHYTHMIA
     Route: 048

REACTIONS (1)
  - DRUG INEFFECTIVE [None]
